FAERS Safety Report 22630152 (Version 1)
Quarter: 2023Q2

REPORT INFORMATION
  Report Type: Spontaneous
  Country: US (occurrence: US)
  Receive Date: 20230622
  Receipt Date: 20230622
  Transmission Date: 20230721
  Serious: No
  Sender: FDA-Public Use
  Company Number: US-MYLANLABS-2023M1051339

PATIENT
  Age: 32 Year
  Sex: Female
  Weight: 80.73 kg

DRUGS (2)
  1. ESTRADIOL TRANSDERMAL SYSTEM [Suspect]
     Active Substance: ESTRADIOL
     Indication: Hormone therapy
     Dosage: 0.075 MILLIGRAM, QD (APPLIED ONCE WEEKLY)
     Route: 062
     Dates: start: 20230303
  2. SPIRONOLACTONE [Concomitant]
     Active Substance: SPIRONOLACTONE
     Dosage: 100 MILLIGRAM, BID (TWICE DAILY)
     Route: 065

REACTIONS (10)
  - Hormone level abnormal [Unknown]
  - Skin lesion [Unknown]
  - Application site pruritus [Unknown]
  - Application site pain [Unknown]
  - Hyperhidrosis [Unknown]
  - Overdose [Unknown]
  - Wrong technique in product usage process [Unknown]
  - Product adhesion issue [Unknown]
  - Product substitution issue [Unknown]
  - Product size issue [Unknown]

NARRATIVE: CASE EVENT DATE: 20230508
